FAERS Safety Report 6704843-0 (Version None)
Quarter: 2010Q2

REPORT INFORMATION
  Report Type: 
  Country: None (occurrence: None)
  Receive Date: 20100430
  Receipt Date: 20100114
  Transmission Date: 20101027
  Serious: No
  Sender: FDA-Public Use
  Company Number: US-ASTRAZENECA-2010SE01782

PATIENT
  Age: 69 Year
  Sex: Male

DRUGS (7)
  1. NEXIUM [Suspect]
     Indication: GASTROOESOPHAGEAL REFLUX DISEASE
     Route: 048
     Dates: start: 20100111
  2. NEXIUM [Suspect]
     Indication: NAUSEA
     Route: 048
     Dates: start: 20100111
  3. AVALIDE [Concomitant]
  4. LIPITOR [Concomitant]
  5. ACTOS [Concomitant]
  6. GLYBURIDE [Concomitant]
  7. SYNTHROID [Concomitant]

REACTIONS (2)
  - INSOMNIA [None]
  - PAIN IN EXTREMITY [None]
